FAERS Safety Report 12770704 (Version 1)
Quarter: 2016Q3

REPORT INFORMATION
  Report Type: Spontaneous
  Country: US (occurrence: US)
  Receive Date: 20160922
  Receipt Date: 20160922
  Transmission Date: 20161109
  Serious: No
  Sender: FDA-Public Use
  Company Number: US-TEVA-641523USA

PATIENT
  Age: 60 Year
  Sex: Male
  Weight: 90.8 kg

DRUGS (1)
  1. NEOMYCIN [Suspect]
     Active Substance: NEOMYCIN
     Route: 065

REACTIONS (1)
  - Swelling face [Unknown]
